FAERS Safety Report 4360376-0 (Version None)
Quarter: 2004Q2

REPORT INFORMATION
  Report Type: 
  Country: None (occurrence: None)
  Receive Date: 20040519
  Receipt Date: 20030826
  Transmission Date: 20050107
  Serious: Yes (Hospitalization)
  Sender: FDA-Public Use
  Company Number: JP-MERCK-0308USA02712

PATIENT
  Age: 89 Year
  Sex: Female

DRUGS (5)
  1. FOSAMAX [Suspect]
     Indication: OSTEOPOROSIS
     Route: 048
     Dates: start: 20030307, end: 20030711
  2. ALFAROL [Concomitant]
     Route: 065
  3. CALCIUM ASPARTATE [Concomitant]
     Route: 065
  4. CARNACULIN [Concomitant]
     Route: 065
  5. MENATETRENONE [Concomitant]
     Route: 065

REACTIONS (1)
  - HAEMATEMESIS [None]
